FAERS Safety Report 22397532 (Version 2)
Quarter: 2023Q2

REPORT INFORMATION
  Report Type: Spontaneous
  Country: US (occurrence: US)
  Receive Date: 20230602
  Receipt Date: 20230623
  Transmission Date: 20230722
  Serious: Yes (Hospitalization, Other)
  Sender: FDA-Public Use
  Company Number: US-BRISTOL-MYERS SQUIBB COMPANY-2023-077693

PATIENT
  Age: 83 Year
  Sex: Female

DRUGS (14)
  1. IDHIFA [Suspect]
     Active Substance: ENASIDENIB MESYLATE
     Indication: Myelodysplastic syndrome with excess blasts
     Route: 048
     Dates: start: 20221031, end: 20221118
  2. IDHIFA [Suspect]
     Active Substance: ENASIDENIB MESYLATE
     Indication: Myelodysplastic syndrome
     Route: 048
     Dates: start: 20221205, end: 20221215
  3. IDHIFA [Suspect]
     Active Substance: ENASIDENIB MESYLATE
     Route: 048
     Dates: start: 20221227, end: 20230124
  4. IDHIFA [Suspect]
     Active Substance: ENASIDENIB MESYLATE
     Route: 048
     Dates: start: 20230201, end: 20230213
  5. IDHIFA [Suspect]
     Active Substance: ENASIDENIB MESYLATE
     Route: 048
     Dates: start: 20230220
  6. VIDAZA [Suspect]
     Active Substance: AZACITIDINE
     Indication: Myelodysplastic syndrome
     Dosage: 1 CYCLE
     Route: 042
     Dates: start: 20220801, end: 20220907
  7. VIDAZA [Suspect]
     Active Substance: AZACITIDINE
     Dosage: CYCLE 3
     Route: 042
     Dates: start: 20221031
  8. VIDAZA [Suspect]
     Active Substance: AZACITIDINE
     Dosage: COMPLETED 6 CYCYLE
     Route: 042
     Dates: end: 20230224
  9. VIDAZA [Suspect]
     Active Substance: AZACITIDINE
     Dosage: EVERY 56 DAYS GIVEN ON DAYS 1-5
     Route: 042
  10. ERGOCALCIFEROL [Concomitant]
     Active Substance: ERGOCALCIFEROL
     Indication: Product used for unknown indication
     Route: 048
  11. LEVOTHYROXINE [Concomitant]
     Active Substance: LEVOTHYROXINE
     Indication: Hypothyroidism
     Route: 048
  12. VITAMINS NOS [Concomitant]
     Active Substance: VITAMINS
     Indication: Product used for unknown indication
     Route: 048
  13. LEVOFLOXACIN [Concomitant]
     Active Substance: LEVOFLOXACIN
     Indication: Prophylaxis
  14. POSACONAZOLE [Concomitant]
     Active Substance: POSACONAZOLE
     Indication: Prophylaxis

REACTIONS (13)
  - Oedema [Not Recovered/Not Resolved]
  - Off label use [Unknown]
  - Abdominal distension [Unknown]
  - Hypophagia [Unknown]
  - Nausea [Unknown]
  - Fatigue [Unknown]
  - COVID-19 [Unknown]
  - Rash [Unknown]
  - Differentiation syndrome [Unknown]
  - Cardiac failure congestive [Unknown]
  - White blood cell count decreased [Unknown]
  - Haemoglobin decreased [Unknown]
  - Myelosuppression [Unknown]

NARRATIVE: CASE EVENT DATE: 20230124
